FAERS Safety Report 26120462 (Version 1)
Quarter: 2025Q4

REPORT INFORMATION
  Report Type: Spontaneous
  Country: US (occurrence: US)
  Receive Date: 20251204
  Receipt Date: 20251204
  Transmission Date: 20260117
  Serious: No
  Sender: MANKIND PHARMA
  Company Number: US-MANKIND PHARMA LIMITED-2025-US-00005

PATIENT

DRUGS (1)
  1. HALOPERIDOL DECANOATE [Suspect]
     Active Substance: HALOPERIDOL DECANOATE
     Indication: Product used for unknown indication
     Route: 058

REACTIONS (4)
  - Injection site pain [Unknown]
  - Injection site induration [Unknown]
  - Injection site erythema [Unknown]
  - Incorrect route of product administration [Unknown]
